FAERS Safety Report 4440755-3 (Version None)
Quarter: 2004Q3

REPORT INFORMATION
  Report Type: 
  Country: None (occurrence: None)
  Receive Date: 20040728
  Receipt Date: 20040330
  Transmission Date: 20050211
  Serious: No
  Sender: FDA-Public Use
  Company Number: USA031152900

PATIENT
  Age: 11 Year
  Sex: Male
  Weight: 35 kg

DRUGS (4)
  1. STRATTERA [Suspect]
     Indication: ATTENTION DEFICIT/HYPERACTIVITY DISORDER
     Dosage: 40 MG/DAY
     Dates: start: 20031108, end: 20031114
  2. CLARITIN [Concomitant]
  3. PREVACID [Concomitant]
  4. OMNICEF [Concomitant]

REACTIONS (7)
  - BACK PAIN [None]
  - CHEST PAIN [None]
  - CHEST WALL PAIN [None]
  - DIZZINESS [None]
  - DYSPNOEA [None]
  - PHARYNGOLARYNGEAL PAIN [None]
  - PYREXIA [None]
